FAERS Safety Report 15644327 (Version 3)
Quarter: 2018Q4

REPORT INFORMATION
  Report Type: Report from Study
  Country: NL (occurrence: NL)
  Receive Date: 20181121
  Receipt Date: 20181227
  Transmission Date: 20190205
  Serious: Yes (Hospitalization, Other)
  Sender: FDA-Public Use
  Company Number: NL-SA-2018SA304093

PATIENT
  Age: 40 Year
  Sex: Female
  Weight: 148 kg

DRUGS (4)
  1. LEVOTHYROXINE. [Concomitant]
     Active Substance: LEVOTHYROXINE
     Dosage: 100 UG, QD
     Route: 048
  2. LEVOTHYROXINE. [Concomitant]
     Active Substance: LEVOTHYROXINE
     Dosage: 125 UG, QD
     Route: 048
  3. CALCIUM CARBONATE. [Concomitant]
     Active Substance: CALCIUM CARBONATE
     Dosage: 1.25 G, 500 MG CA, BID
     Route: 048
  4. THYROTROPIN ALFA [Suspect]
     Active Substance: THYROTROPIN ALFA
     Indication: HIGH FREQUENCY ABLATION
     Dosage: 0.9 MG, QD
     Route: 030
     Dates: start: 20181031, end: 20181101

REACTIONS (7)
  - Pyrexia [Recovered/Resolved]
  - Chills [Recovered/Resolved]
  - Pharyngeal abscess [Recovering/Resolving]
  - Immune system disorder [Recovered/Resolved]
  - Influenza like illness [Recovered/Resolved]
  - Laryngitis [Recovering/Resolving]
  - Oropharyngeal pain [Recovered/Resolved]

NARRATIVE: CASE EVENT DATE: 2018
